FAERS Safety Report 6612473-4 (Version None)
Quarter: 2010Q1

REPORT INFORMATION
  Report Type: 
  Country: None (occurrence: None)
  Receive Date: 20100303
  Receipt Date: 20100222
  Transmission Date: 20100710
  Serious: Yes (Other)
  Sender: FDA-Public Use
  Company Number: US-PFIZER INC-2008023001

PATIENT
  Sex: Female
  Weight: 74 kg

DRUGS (10)
  1. CHANTIX [Suspect]
     Indication: SMOKING CESSATION THERAPY
     Dosage: 0.5 MG, 1X/DAY
     Route: 048
     Dates: start: 20080101
  2. CHANTIX [Suspect]
     Dosage: 0.5 MG, 1X/DAY
     Dates: start: 20080206, end: 20080208
  3. CHANTIX [Suspect]
     Dosage: 0.5 MG, 2X/DAY
     Dates: start: 20080209, end: 20080212
  4. CHANTIX [Suspect]
     Dosage: 1 MG, 2X/DAY
     Dates: start: 20100213
  5. CHANTIX [Suspect]
     Dosage: 0.5 MG, 1X/DAY
     Route: 048
     Dates: start: 20100201, end: 20100201
  6. CHANTIX [Suspect]
     Dosage: 0.5 MG, 2X/DAY
     Route: 048
     Dates: start: 20100201
  7. NEBIVOLOL [Concomitant]
     Indication: HYPERTENSION
     Dosage: 5 MG, 1X/DAY
     Route: 048
  8. FENOFIBRATE [Concomitant]
     Indication: BLOOD TRIGLYCERIDES INCREASED
     Dosage: 135 MG, 1X/DAY
     Route: 048
     Dates: start: 20100201
  9. FENOFIBRATE [Concomitant]
     Indication: BLOOD CHOLESTEROL INCREASED
  10. NAPROXEN [Concomitant]
     Indication: ARTHRITIS
     Dosage: 500 MG, 1X/DAY
     Route: 048

REACTIONS (9)
  - DECREASED APPETITE [None]
  - DEPRESSED MOOD [None]
  - HEADACHE [None]
  - HEPATIC ENZYME INCREASED [None]
  - HYPERTENSION [None]
  - MOOD ALTERED [None]
  - NAUSEA [None]
  - TERMINAL INSOMNIA [None]
  - VOMITING [None]
